FAERS Safety Report 9263919 (Version 1)
Quarter: 2013Q2

REPORT INFORMATION
  Report Type: Spontaneous
  Country: CN (occurrence: CN)
  Receive Date: 20130430
  Receipt Date: 20130430
  Transmission Date: 20140414
  Serious: Yes (Life-Threatening)
  Sender: FDA-Public Use
  Company Number: CN-ASTRAZENECA-2013SE29209

PATIENT
  Age: 59 Year
  Sex: Male
  Weight: 64.5 kg

DRUGS (2)
  1. DIPRIVAN [Suspect]
     Indication: ANAESTHESIA
     Route: 042
  2. DIPRIVAN [Suspect]
     Indication: SEDATION
     Route: 042

REACTIONS (2)
  - Bronchospasm [Recovered/Resolved]
  - Laryngeal oedema [Recovered/Resolved]
